FAERS Safety Report 7981781-7 (Version None)
Quarter: 2011Q4

REPORT INFORMATION
  Report Type: 
  Country: None (occurrence: None)
  Receive Date: 20111215
  Receipt Date: 20111206
  Transmission Date: 20120403
  Serious: Yes (Hospitalization, Other)
  Sender: FDA-Public Use
  Company Number: JP-BAXTER-2011BH036826

PATIENT
  Age: 46 Year
  Sex: Male
  Weight: 57 kg

DRUGS (8)
  1. DIANEAL [Suspect]
     Indication: RENAL FAILURE CHRONIC
     Route: 033
     Dates: start: 19900801, end: 20000401
  2. DIANEAL [Suspect]
     Route: 033
     Dates: start: 19900801, end: 20020101
  3. DIANEAL [Suspect]
     Route: 033
     Dates: start: 20040101, end: 20060901
  4. DIANEAL [Suspect]
     Indication: RENAL FAILURE CHRONIC
     Route: 033
     Dates: start: 20020101, end: 20040101
  5. DIANEAL [Suspect]
     Route: 033
     Dates: start: 20020101, end: 20040101
  6. DIANEAL [Suspect]
     Route: 033
     Dates: start: 20040101, end: 20060901
  7. DIANEAL [Suspect]
     Route: 033
     Dates: start: 20000501, end: 20020101
  8. DIANEAL [Suspect]
     Route: 033
     Dates: start: 20020101, end: 20040101

REACTIONS (2)
  - NONINFECTIOUS PERITONITIS [None]
  - SCLEROSING ENCAPSULATING PERITONITIS [None]
